FAERS Safety Report 20423049 (Version 1)
Quarter: 2022Q1

REPORT INFORMATION
  Report Type: Spontaneous
  Country: MO (occurrence: MO)
  Receive Date: 20220203
  Receipt Date: 20220203
  Transmission Date: 20220424
  Serious: Yes (Other)
  Sender: FDA-Public Use
  Company Number: MO-TAKEDA-2021TUS077361

PATIENT
  Age: 18 Year
  Weight: 24 kg

DRUGS (1)
  1. ELAPRASE [Suspect]
     Active Substance: IDURSULFASE
     Indication: Mucopolysaccharidosis II
     Dosage: UNK
     Route: 065
     Dates: end: 202111

REACTIONS (4)
  - Rash [Unknown]
  - Dyspnoea [Unknown]
  - Gait inability [Unknown]
  - Communication disorder [Unknown]

NARRATIVE: CASE EVENT DATE: 20210901
